FAERS Safety Report 20900419 (Version 1)
Quarter: 2022Q2

REPORT INFORMATION
  Report Type: Spontaneous
  Country: US (occurrence: US)
  Receive Date: 20220601
  Receipt Date: 20220601
  Transmission Date: 20220721
  Serious: No
  Sender: FDA-Public Use
  Company Number: US-ALKERMES INC.-ALK-2022-002562

PATIENT
  Age: 17 Year
  Sex: Female

DRUGS (1)
  1. ARISTADA [Suspect]
     Active Substance: ARIPIPRAZOLE LAUROXIL
     Indication: Product used for unknown indication
     Route: 030

REACTIONS (4)
  - Mania [Not Recovered/Not Resolved]
  - Histrionic personality disorder [Not Recovered/Not Resolved]
  - Promiscuity [Not Recovered/Not Resolved]
  - Off label use [Unknown]
